FAERS Safety Report 5506339-0 (Version None)
Quarter: 2007Q4

REPORT INFORMATION
  Report Type: 
  Country: None (occurrence: None)
  Receive Date: 20071101
  Receipt Date: 20071101
  Transmission Date: 20080405
  Serious: Yes (Hospitalization)
  Sender: FDA-Public Use
  Company Number: None

PATIENT
  Sex: Male
  Weight: 69.1 kg

DRUGS (4)
  1. FLUOROURACIL [Suspect]
     Dosage: 12632 MG
     Dates: end: 20070911
  2. BEVACIZUMAB(RHUMAB VEGF) [Suspect]
     Dosage: 1130 MG
     Dates: end: 20070911
  3. LEUCOVORIN CALCIUM [Suspect]
     Dosage: 2256 MG
     Dates: end: 20070911
  4. ELOXATIN [Suspect]
     Dosage: 479 MG
     Dates: end: 20070911

REACTIONS (5)
  - FATIGUE [None]
  - NAUSEA [None]
  - PAINFUL DEFAECATION [None]
  - PROCTALGIA [None]
  - VOMITING [None]
